FAERS Safety Report 24080676 (Version 2)
Quarter: 2024Q4

REPORT INFORMATION
  Report Type: Spontaneous
  Country: GB (occurrence: GB)
  Receive Date: 20240711
  Receipt Date: 20241030
  Transmission Date: 20250115
  Serious: Yes (Death, Other)
  Sender: GILEAD
  Company Number: None

PATIENT
  Age: 65 Year
  Sex: Male

DRUGS (16)
  1. AXICABTAGENE CILOLEUCEL [Suspect]
     Active Substance: AXICABTAGENE CILOLEUCEL
     Indication: Diffuse large B-cell lymphoma
     Dosage: 1 BAG
     Route: 042
     Dates: start: 20240624, end: 20240624
  2. GRANISETRON [Concomitant]
     Active Substance: GRANISETRON
     Dosage: PRESCRIBED ON THE CHEMOTHERAPY SCRIPT ON DAY -5 (19.06.24) -4 (20.06.24) - 3 (21.06.24).
     Route: 042
     Dates: start: 20240619, end: 20240621
  3. LEVETIRACETAM [Concomitant]
     Active Substance: LEVETIRACETAM
     Dosage: FROM D-1 TO D+30
     Route: 048
     Dates: start: 20240623
  4. LEVETIRACETAM [Concomitant]
     Active Substance: LEVETIRACETAM
     Dosage: REDUCE DOSE FOR 7 DAYS THEN STOP.
     Route: 048
  5. METOCLOPRAMIDE [Concomitant]
     Active Substance: METOCLOPRAMIDE
     Dosage: 3 TIMES A DAY AS NEEDED FROM D-5. REVIEW REQUIREMENT ON D+7.
     Dates: start: 20240619
  6. TOCILIZUMAB [Concomitant]
     Active Substance: TOCILIZUMAB
     Dosage: (AS PER DOSE BANDING) 8 HOURLY AS A AS NEEDED MEDICATION, WITH A CLEAR ADMINISTRATION NOTE ?TO BE US
     Route: 042
  7. OMEPRAZOLE [Concomitant]
     Active Substance: OMEPRAZOLE
     Dosage: FROM D-5. REVIEW WHEN PLATELET COUNT }50X109/L.
     Route: 048
     Dates: start: 20240619
  8. ACYCLOVIR [Concomitant]
     Active Substance: ACYCLOVIR
     Dosage: D-5 ONWARDS FOR MINIMUM 1 YEAR.
     Route: 048
     Dates: start: 20240619
  9. ONDANSETRON [Concomitant]
     Active Substance: ONDANSETRON
     Dosage: FROM D-2 . REVIEW REQUIREMENT ON D+7
     Dates: start: 20240622
  10. POSACONAZOLE [Concomitant]
     Active Substance: POSACONAZOLE
     Dosage: D-5
     Route: 048
     Dates: start: 20240619
  11. POSACONAZOLE [Concomitant]
     Active Substance: POSACONAZOLE
     Dosage: FROM D-4  TO D+28.
     Route: 048
     Dates: start: 20240620
  12. CYCLOPHOSPHAMIDE [Concomitant]
     Active Substance: CYCLOPHOSPHAMIDE
     Dosage: DAY-5, DAY-4 , DAY-3 AS PART OF YESCARTA - AXICABTAGENE CILOLEUCEL LYMPHODEPLETION CONDITIONING PROT
     Route: 042
     Dates: start: 20240619, end: 20240621
  13. COTRIMOXAZOLE [Concomitant]
     Active Substance: SULFAMETHOXAZOLE\TRIMETHOPRIM
     Dosage: FROM D-5  UNTIL NEUTROPHILS DROP {1X109/L.
     Dates: start: 20240619
  14. FLUDARABINE [Concomitant]
     Active Substance: FLUDARABINE PHOSPHATE
     Dosage: DAY-5, DAY-4 , DAY-3 AS PART OF YESCARTA - AXICABTAGENE CILOLEUCEL LYMPHODEPLETION CONDITIONING PROT
     Route: 042
     Dates: start: 20240619, end: 20240621
  15. DALTEPARIN [Concomitant]
     Active Substance: DALTEPARIN
     Indication: Thrombosis prophylaxis
     Dosage: IF PLATELET COUNT }50 WITH THE INSTRUCTION TO SWITCH TO TEDS WHEN PLATELET COUNT BELOW THIS THRESHOL
  16. METHYLPREDNISOLONE [Concomitant]
     Active Substance: METHYLPREDNISOLONE
     Route: 042
     Dates: start: 20240503

REACTIONS (8)
  - Intestinal ischaemia [Fatal]
  - Metabolic acidosis [Not Recovered/Not Resolved]
  - Ill-defined disorder [Not Recovered/Not Resolved]
  - Multiple organ dysfunction syndrome [Not Recovered/Not Resolved]
  - Deep vein thrombosis [Not Recovered/Not Resolved]
  - Cardiac arrest [Not Recovered/Not Resolved]
  - Vomiting [Not Recovered/Not Resolved]
  - Diarrhoea [Not Recovered/Not Resolved]

NARRATIVE: CASE EVENT DATE: 20240708
